FAERS Safety Report 4322065-8 (Version None)
Quarter: 2004Q1

REPORT INFORMATION
  Report Type: 
  Country: None (occurrence: None)
  Receive Date: 20040323
  Receipt Date: 20040311
  Transmission Date: 20041129
  Serious: Yes (Hospitalization)
  Sender: FDA-Public Use
  Company Number: FR-BRISTOL-MYERS SQUIBB COMPANY-12534368

PATIENT
  Age: 71 Year
  Sex: Male

DRUGS (6)
  1. GLUCOPHAGE [Suspect]
     Indication: DIABETES MELLITUS
  2. MEDIATOR [Concomitant]
  3. CORTANCYL [Concomitant]
  4. LEVOTIROX [Concomitant]
  5. PLAQUENIL [Concomitant]
  6. XATRAL [Concomitant]

REACTIONS (3)
  - MACROCYTOSIS [None]
  - VITAMIN B12 DEFICIENCY [None]
  - WEIGHT DECREASED [None]
